FAERS Safety Report 9552316 (Version 2)
Quarter: 2013Q4

REPORT INFORMATION
  Report Type: Report from Study
  Country: AR (occurrence: AR)
  Receive Date: 20130925
  Receipt Date: 20131014
  Transmission Date: 20140711
  Serious: Yes (Hospitalization, Other)
  Sender: FDA-Public Use
  Company Number: AR-ROCHE-1278284

PATIENT
  Sex: Male

DRUGS (2)
  1. RANIBIZUMAB [Suspect]
     Indication: BLINDNESS
     Route: 050
  2. RANIBIZUMAB [Suspect]
     Indication: DIABETES MELLITUS

REACTIONS (3)
  - Cerebrovascular accident [Recovered/Resolved]
  - Mental disorder [Unknown]
  - Hypertension [Unknown]
